FAERS Safety Report 18668896 (Version 1)
Quarter: 2020Q4

REPORT INFORMATION
  Report Type: Spontaneous
  Country: CA (occurrence: CA)
  Receive Date: 20201227
  Receipt Date: 20201227
  Transmission Date: 20210114
  Serious: Yes (Other)
  Sender: FDA-Public Use
  Company Number: None

PATIENT
  Age: 15 Year

DRUGS (1)
  1. DUPIXENT [Suspect]
     Active Substance: DUPILUMAB
     Indication: ECZEMA
     Dosage: ?          OTHER FREQUENCY:Q2WEKS;?
     Route: 030

REACTIONS (5)
  - Cataract [None]
  - Vision blurred [None]
  - Ocular hyperaemia [None]
  - Visual impairment [None]
  - Eyelid disorder [None]

NARRATIVE: CASE EVENT DATE: 20190830
